FAERS Safety Report 18281788 (Version 2)
Quarter: 2020Q3

REPORT INFORMATION
  Report Type: Spontaneous
  Country: US (occurrence: US)
  Receive Date: 20200918
  Receipt Date: 20200922
  Transmission Date: 20201103
  Serious: No
  Sender: FDA-Public Use
  Company Number: US-IPSEN BIOPHARMACEUTICALS, INC.-2020-17028

PATIENT
  Age: 47 Year
  Sex: Female

DRUGS (5)
  1. DYSPORT [Suspect]
     Active Substance: ABOBOTULINUMTOXINA
     Indication: OFF LABEL USE
  2. DYSPORT [Suspect]
     Active Substance: ABOBOTULINUMTOXINA
     Indication: SKIN WRINKLING
     Dosage: 130 UNITS (FRONTALIS, GLABELLAR/BETWEEN EYEBROWS, CROW^S FEET)
     Route: 065
     Dates: start: 20200910, end: 20200910
  3. DYSPORT [Suspect]
     Active Substance: ABOBOTULINUMTOXINA
     Indication: SKIN WRINKLING
  4. DYSPORT [Suspect]
     Active Substance: ABOBOTULINUMTOXINA
     Indication: SKIN WRINKLING
  5. ZOLPIDEM [Concomitant]
     Active Substance: ZOLPIDEM TARTRATE

REACTIONS (8)
  - Asthenopia [Not Recovered/Not Resolved]
  - Paranasal sinus discomfort [Not Recovered/Not Resolved]
  - Eyelid ptosis [Not Recovered/Not Resolved]
  - Drug ineffective [Unknown]
  - Off label use [Unknown]
  - Ocular discomfort [Not Recovered/Not Resolved]
  - Headache [Not Recovered/Not Resolved]
  - Dermatochalasis [Not Recovered/Not Resolved]

NARRATIVE: CASE EVENT DATE: 202009
